FAERS Safety Report 7468713-5 (Version None)
Quarter: 2011Q2

REPORT INFORMATION
  Report Type: 
  Country: None (occurrence: None)
  Receive Date: 20110510
  Receipt Date: 20110425
  Transmission Date: 20111010
  Serious: No
  Sender: FDA-Public Use
  Company Number: US-BIOGENIDEC-2011BI008302

PATIENT
  Age: 55 Year
  Sex: Female

DRUGS (5)
  1. REBIF [Concomitant]
     Indication: MULTIPLE SCLEROSIS
     Route: 058
  2. STEROIDS (NOS) [Concomitant]
     Dates: end: 20091201
  3. REBIF [Concomitant]
     Route: 058
     Dates: start: 20100614
  4. IBUPROFEN [Concomitant]
     Indication: BACK PAIN
     Dates: start: 20010101
  5. TYSABRI [Suspect]
     Indication: MULTIPLE SCLEROSIS
     Route: 042
     Dates: start: 20080502, end: 20100303

REACTIONS (2)
  - HUMAN PAPILLOMA VIRUS TEST POSITIVE [None]
  - CERVICAL DYSPLASIA [None]
